FAERS Safety Report 7380187-1 (Version None)
Quarter: 2011Q1

REPORT INFORMATION
  Report Type: 
  Country: None (occurrence: None)
  Receive Date: 20110329
  Receipt Date: 20101115
  Transmission Date: 20110831
  Serious: No
  Sender: FDA-Public Use
  Company Number: US-MYLANLABS-2010S1020716

PATIENT
  Sex: Female

DRUGS (1)
  1. ESTRADIOL [Suspect]
     Route: 062
     Dates: start: 20091101

REACTIONS (6)
  - APPLICATION SITE ULCER [None]
  - APPLICATION SITE PRURITUS [None]
  - APPLICATION SITE ERYTHEMA [None]
  - APPLICATION SITE PAIN [None]
  - APPLICATION SITE REACTION [None]
  - APPLICATION SITE VESICLES [None]
